FAERS Safety Report 14974427 (Version 1)
Quarter: 2018Q2

REPORT INFORMATION
  Report Type: Spontaneous
  Country: GB (occurrence: FR)
  Receive Date: 20180605
  Receipt Date: 20180605
  Transmission Date: 20180711
  Serious: Yes (Hospitalization)
  Sender: FDA-Public Use
  Company Number: FR-FRESENIUS KABI-FK201806164

PATIENT
  Age: 71 Year
  Sex: Male
  Weight: 61 kg

DRUGS (12)
  1. LASILIX [Concomitant]
     Active Substance: FUROSEMIDE
     Indication: PRODUCT USED FOR UNKNOWN INDICATION
     Route: 048
  2. ROPIVACAINE FRESENIUS KABI 7.5MG/ML [Suspect]
     Active Substance: ROPIVACAINE HYDROCHLORIDE
     Indication: CATARACT OPERATION
     Dosage: 7,5 MG/ML FORM STRENGTH
     Route: 047
     Dates: start: 20180416, end: 20180416
  3. APROKAM [Suspect]
     Active Substance: CEFUROXIME SODIUM
     Indication: CATARACT OPERATION
     Route: 047
     Dates: start: 20180416, end: 20180416
  4. ASPIRINE [Concomitant]
     Active Substance: ASPIRIN
     Indication: PRODUCT USED FOR UNKNOWN INDICATION
     Route: 048
  5. TETRACAINE THEA [Suspect]
     Active Substance: TETRACAINE HYDROCHLORIDE
     Indication: CATARACT OPERATION
     Route: 047
     Dates: start: 20180416, end: 20180416
  6. MIDAZOLAM [Suspect]
     Active Substance: MIDAZOLAM HYDROCHLORIDE
     Indication: CATARACT OPERATION
     Dosage: 0,5 MILLIGRAM
     Route: 042
     Dates: start: 20180416, end: 20180416
  7. BETADINE [Suspect]
     Active Substance: POVIDONE-IODINE
     Indication: CATARACT OPERATION
     Route: 047
     Dates: start: 20180416, end: 20180416
  8. LODOZ [Concomitant]
     Active Substance: BISOPROLOL FUMARATE\HYDROCHLOROTHIAZIDE
     Indication: PRODUCT USED FOR UNKNOWN INDICATION
  9. AZYTER [Suspect]
     Active Substance: AZITHROMYCIN ANHYDROUS
     Indication: CATARACT OPERATION
     Route: 047
     Dates: start: 20180416
  10. TAHOR [Concomitant]
     Active Substance: ATORVASTATIN CALCIUM
     Indication: PRODUCT USED FOR UNKNOWN INDICATION
     Route: 048
  11. MIOCHOLE [Suspect]
     Active Substance: ACETYLCHOLINE CHLORIDE
     Indication: CATARACT OPERATION
     Route: 047
     Dates: start: 20180416, end: 20180416
  12. EUPRESSYL [Suspect]
     Active Substance: URAPIDIL
     Indication: CATARACT OPERATION
     Route: 042
     Dates: start: 20180416, end: 20180416

REACTIONS (1)
  - Purpura [Recovering/Resolving]

NARRATIVE: CASE EVENT DATE: 20180416
